FAERS Safety Report 6882390-3 (Version None)
Quarter: 2010Q3

REPORT INFORMATION
  Report Type: 
  Country: None (occurrence: None)
  Receive Date: 20100702
  Receipt Date: 20091002
  Transmission Date: 20110219
  Serious: Yes (Other)
  Sender: FDA-Public Use
  Company Number: 2009278203

PATIENT

DRUGS (1)
  1. SERTRALINE HYDROCHLORIDE [Suspect]

REACTIONS (10)
  - AGITATION [None]
  - ANGER [None]
  - ANXIETY [None]
  - DRUG INEFFECTIVE [None]
  - HEADACHE [None]
  - INSOMNIA [None]
  - IRRITABILITY [None]
  - MALAISE [None]
  - PALPITATIONS [None]
  - VISION BLURRED [None]
